FAERS Safety Report 13723611 (Version 1)
Quarter: 2017Q3

REPORT INFORMATION
  Report Type: Spontaneous
  Country: US (occurrence: US)
  Receive Date: 20170706
  Receipt Date: 20170706
  Transmission Date: 20171127
  Serious: No
  Sender: FDA-Public Use
  Company Number: US-JNJFOC-20160903706

PATIENT
  Age: 83 Year
  Sex: Male
  Weight: 102.06 kg

DRUGS (2)
  1. IMODIUM MULTI-SYMPTOM RELIEF [Suspect]
     Active Substance: DIMETHICONE\LOPERAMIDE HYDROCHLORIDE
     Indication: FLATULENCE
     Dosage: 1-2 CAPLETS AFTER EACH LOOSE MOTION, NOT EXCEEDING 4 CAPLETS IN 24 HOURS
     Route: 048
     Dates: end: 20160901
  2. IMODIUM MULTI-SYMPTOM RELIEF [Suspect]
     Active Substance: DIMETHICONE\LOPERAMIDE HYDROCHLORIDE
     Indication: DIARRHOEA
     Dosage: 1-2 CAPLETS AFTER EACH LOOSE MOTION, NOT EXCEEDING 4 CAPLETS IN 24 HOURS
     Route: 048
     Dates: end: 20160901

REACTIONS (1)
  - Drug ineffective [Unknown]
